FAERS Safety Report 8330831-7 (Version None)
Quarter: 2012Q2

REPORT INFORMATION
  Report Type: 
  Country: None (occurrence: None)
  Receive Date: 20120502
  Receipt Date: 20120410
  Transmission Date: 20120825
  Serious: No
  Sender: FDA-Public Use
  Company Number: US-AMGEN-USASP2012022672

PATIENT
  Age: 61 Year
  Sex: Female

DRUGS (1)
  1. ENBREL [Suspect]
     Indication: PSORIASIS
     Dosage: 50 MG, QWK
     Dates: start: 20060401

REACTIONS (7)
  - COUGH [None]
  - INJECTION SITE HAEMATOMA [None]
  - SNEEZING [None]
  - RHINORRHOEA [None]
  - BRONCHITIS [None]
  - PSORIASIS [None]
  - LACRIMATION INCREASED [None]
